FAERS Safety Report 9929623 (Version 1)
Quarter: 2014Q1

REPORT INFORMATION
  Report Type: Report from Study
  Country: US (occurrence: US)
  Receive Date: 20140227
  Receipt Date: 20140227
  Transmission Date: 20141002
  Serious: Yes (Other)
  Sender: FDA-Public Use
  Company Number: US-CELGENEUS-163-20785-14023221

PATIENT
  Age: 47 Year
  Sex: Male
  Weight: 134 kg

DRUGS (4)
  1. THALOMID [Suspect]
     Indication: PLASMA CELL MYELOMA
     Route: 048
  2. THALOMID [Suspect]
     Dosage: INCREASED DOSAGE
     Route: 048
  3. THALOMID [Suspect]
     Dosage: DECREASED DOSAGE
     Route: 048
  4. DEXAMETHASONE [Concomitant]
     Indication: PRODUCT USED FOR UNKNOWN INDICATION
     Route: 065

REACTIONS (1)
  - Toxicity to various agents [Unknown]
